FAERS Safety Report 25244778 (Version 2)
Quarter: 2025Q3

REPORT INFORMATION
  Report Type: Spontaneous
  Country: JP (occurrence: JP)
  Receive Date: 20250428
  Receipt Date: 20250715
  Transmission Date: 20251021
  Serious: Yes (Hospitalization)
  Sender: FERRING
  Company Number: JP-ferring-EVA202500586FERRINGPH

PATIENT

DRUGS (5)
  1. NOCDURNA [Suspect]
     Active Substance: DESMOPRESSIN ACETATE
     Indication: Nocturia
     Dosage: 25 UG, DAILY
     Route: 048
     Dates: start: 20241119, end: 20241122
  2. SILODOSIN OD [Concomitant]
     Indication: Product used for unknown indication
     Route: 048
     Dates: start: 20231003
  3. MIRABEGRON [Concomitant]
     Active Substance: MIRABEGRON
     Indication: Product used for unknown indication
     Route: 048
     Dates: start: 20240924
  4. LIMAPROST [Concomitant]
     Active Substance: LIMAPROST
     Indication: Product used for unknown indication
     Route: 065
     Dates: start: 20200213
  5. METHYLCOBALAMIN [Concomitant]
     Active Substance: METHYLCOBALAMIN
     Indication: Product used for unknown indication
     Route: 065
     Dates: start: 20240523

REACTIONS (5)
  - Orthopnoea [Recovered/Resolved]
  - Headache [Recovered/Resolved]
  - Nausea [Unknown]
  - Product use issue [Recovered/Resolved]
  - Underdose [Recovered/Resolved]

NARRATIVE: CASE EVENT DATE: 20241119
